FAERS Safety Report 12435101 (Version 3)
Quarter: 2019Q2

REPORT INFORMATION
  Report Type: Report from Study
  Country: US (occurrence: US)
  Receive Date: 20160603
  Receipt Date: 20190402
  Transmission Date: 20190711
  Serious: Yes (Other)
  Sender: FDA-Public Use
  Company Number: US-ROCHE-1712240

PATIENT
  Sex: Female

DRUGS (10)
  1. KLONOPIN [Suspect]
     Active Substance: CLONAZEPAM
     Indication: PANIC DISORDER
  2. FLUTICASONE PROPIONATE INHALER [Concomitant]
     Active Substance: FLUTICASONE PROPIONATE
  3. METFORMIN [Concomitant]
     Active Substance: METFORMIN HYDROCHLORIDE
     Route: 065
  4. FLUOXETINE [Concomitant]
     Active Substance: FLUOXETINE HYDROCHLORIDE
     Route: 065
     Dates: start: 1990
  5. PROZAC [Concomitant]
     Active Substance: FLUOXETINE HYDROCHLORIDE
     Route: 065
  6. LEVOTHYROXINE. [Concomitant]
     Active Substance: LEVOTHYROXINE
  7. SITAGLIPTIN [Concomitant]
     Active Substance: SITAGLIPTIN
  8. KLONOPIN [Suspect]
     Active Substance: CLONAZEPAM
     Indication: ANXIETY
     Route: 065
     Dates: start: 1990
  9. JANUMET [Concomitant]
     Active Substance: METFORMIN HYDROCHLORIDE\SITAGLIPTIN PHOSPHATE
     Indication: DIABETES MELLITUS
  10. SYNTHROID [Concomitant]
     Active Substance: LEVOTHYROXINE SODIUM

REACTIONS (9)
  - Withdrawal syndrome [Recovered/Resolved]
  - Drug tolerance [Unknown]
  - Diabetes mellitus [Unknown]
  - Thyrotoxic crisis [Unknown]
  - Ill-defined disorder [Unknown]
  - Suicidal ideation [Recovered/Resolved]
  - Basedow^s disease [Unknown]
  - Drug dependence [Unknown]
  - Drug hypersensitivity [Unknown]
